FAERS Safety Report 9053945 (Version 1)
Quarter: 2013Q1

REPORT INFORMATION
  Report Type: Report from Study
  Country: AR (occurrence: AR)
  Receive Date: 20130208
  Receipt Date: 20130208
  Transmission Date: 20140127
  Serious: Yes (Other)
  Sender: FDA-Public Use
  Company Number: AR-AMGEN-US344913

PATIENT
  Age: 84 Year
  Sex: Male

DRUGS (2)
  1. DARBEPOETIN ALFA [Suspect]
     Indication: CARDIAC FAILURE
     Dosage: UNK UNK, Q2WK
     Route: 058
     Dates: start: 20080423, end: 20080724
  2. DARBEPOETIN ALFA [Suspect]
     Dosage: UNK UNK, QMO
     Route: 058
     Dates: start: 20080820, end: 20090427

REACTIONS (1)
  - Squamous cell carcinoma [Not Recovered/Not Resolved]
